FAERS Safety Report 10498191 (Version 1)
Quarter: 2014Q4

REPORT INFORMATION
  Report Type: Spontaneous
  Country: US (occurrence: None)
  Receive Date: 20141002
  Receipt Date: 20141002
  Transmission Date: 20150528
  Serious: Yes (Hospitalization, Other)
  Sender: FDA-Public Use
  Company Number: VAL_03456_2014

PATIENT
  Sex: Male

DRUGS (17)
  1. PROCRIT / 00928302 / (UNKNOWN) [Concomitant]
  2. CYSTAGON (UNKNOWN, UKNOWN) [Concomitant]
  3. NEUTRA-PHOS / 00555301 / (UNKNOWN) [Concomitant]
  4. HEPARIN (UNKNOWN, UNKNOWN) [Concomitant]
  5. NUTROPIN AQ [Suspect]
     Active Substance: SOMATROPIN
     Indication: CHRONIC KIDNEY DISEASE
     Dosage: (UNKNOWN), (UNKNOWN)
     Route: 058
  6. K-DUR (UNKNOWN) [Concomitant]
  7. EPOGEN (UNKNOWN) [Concomitant]
  8. FERRLECIT  /  00023541 / (UNKNOWN) [Concomitant]
  9. ZEMPLAR (UNKNOWN) [Concomitant]
  10. FERREX (UNKNOWN) [Concomitant]
  11. TUMS / 07357001 / (UNKNOWN) [Concomitant]
  12. SODIUM CHLORIDE (UNKNOWN) [Concomitant]
     Active Substance: SODIUM CHLORIDE
  13. ACETAMINOPHEN (UNKNOWN) [Concomitant]
     Active Substance: ACETAMINOPHEN
  14. UROCRIT-K (UNKNOWN) [Concomitant]
  15. CALCITRIOL. [Suspect]
     Active Substance: CALCITRIOL
     Indication: PRODUCT USED FOR UNKNOWN INDICATION
     Route: 048
  16. LIDOCAINE (UNKNOWN) [Concomitant]
     Active Substance: LIDOCAINE
  17. ALBUMIN HUMAN [Concomitant]
     Active Substance: ALBUMIN (HUMAN)

REACTIONS (10)
  - Muscle spasms [None]
  - Hyperparathyroidism [None]
  - Growth retardation [None]
  - Haemoglobin decreased [None]
  - Abdominal distension [None]
  - Photosensitivity reaction [None]
  - Red blood cell count decreased [None]
  - Periorbital oedema [None]
  - Blood creatinine increased [None]
  - Blood urea increased [None]
